FAERS Safety Report 4402180-0 (Version None)
Quarter: 2004Q3

REPORT INFORMATION
  Report Type: 
  Country: None (occurrence: None)
  Receive Date: 20040716
  Receipt Date: 20040702
  Transmission Date: 20050211
  Serious: Yes (Death, Hospitalization)
  Sender: FDA-Public Use
  Company Number: 02100-JPN-04-0166

PATIENT
  Age: 71 Year
  Sex: Male

DRUGS (7)
  1. CILOSTAZOL [Suspect]
     Indication: CEREBRAL INFARCTION
     Dosage: 100 MG  ORAL
     Route: 048
     Dates: end: 20040617
  2. ASPIRIN [Suspect]
     Indication: CEREBRAL INFARCTION
     Dosage: 100 MG  ORAL
     Route: 048
     Dates: end: 20040617
  3. CARBOCISTEINE [Concomitant]
  4. TEPRENONE [Concomitant]
  5. PROCATEROL HCL [Concomitant]
  6. TAMSULOSIN HYDROCHLORIDE [Concomitant]
  7. FAMOTIDINE [Concomitant]

REACTIONS (20)
  - ACTIVATED PARTIAL THROMBOPLASTIN TIME PROLONGED [None]
  - BLOOD PRESSURE DECREASED [None]
  - BLOOD PRESSURE INCREASED [None]
  - CEREBRAL HAEMATOMA [None]
  - CEREBRAL HAEMORRHAGE [None]
  - CEREBRAL INFARCTION [None]
  - DYSKINESIA [None]
  - FALL [None]
  - FEELING COLD [None]
  - HAEMATOCRIT DECREASED [None]
  - HAEMOGLOBIN DECREASED [None]
  - HEPATITIS C [None]
  - INTRACRANIAL PRESSURE INCREASED [None]
  - LOSS OF CONSCIOUSNESS [None]
  - NAUSEA [None]
  - PLATELET COUNT DECREASED [None]
  - PUPILS UNEQUAL [None]
  - RESPIRATION ABNORMAL [None]
  - TRAUMATIC HAEMATOMA [None]
  - WHITE BLOOD CELL COUNT DECREASED [None]
